FAERS Safety Report 9953872 (Version 1)
Quarter: 2014Q1

REPORT INFORMATION
  Report Type: Spontaneous
  Country: US (occurrence: US)
  Receive Date: 20140304
  Receipt Date: 20140304
  Transmission Date: 20141002
  Serious: No
  Sender: FDA-Public Use
  Company Number: US-AMGEN-USASP2013086813

PATIENT
  Age: 45 Year
  Sex: Male
  Weight: 124.72 kg

DRUGS (8)
  1. ENBREL [Suspect]
     Indication: PSORIATIC ARTHROPATHY
     Dosage: 50 MG, QWK
     Route: 058
     Dates: start: 2008, end: 201310
  2. CENTRUM                            /07499601/ [Concomitant]
     Dosage: UNK
  3. FISH OIL [Concomitant]
     Dosage: UNK
  4. FOLIC ACID [Concomitant]
     Dosage: UNK
  5. LISINOPRIL [Concomitant]
     Dosage: UNK
  6. METOPROLOL [Concomitant]
     Dosage: UNK
  7. PRILOSEC                           /00661201/ [Concomitant]
     Dosage: UNK
  8. VITAMIN D2 [Concomitant]
     Dosage: UNK

REACTIONS (4)
  - Liver disorder [Unknown]
  - Drug effect decreased [Unknown]
  - Polyp [Unknown]
  - Iritis [Unknown]
